FAERS Safety Report 4328785-3 (Version None)
Quarter: 2004Q1

REPORT INFORMATION
  Report Type: 
  Country: None (occurrence: None)
  Receive Date: 20040331
  Receipt Date: 20040317
  Transmission Date: 20041129
  Serious: Yes (Other)
  Sender: FDA-Public Use
  Company Number: 2004018207

PATIENT
  Age: 17 Week
  Sex: Male
  Weight: 8.1647 kg

DRUGS (1)
  1. INFANTS' PEDIACARE DECONGESTANT (PSEUDOEPHEDRINE) [Suspect]
     Indication: NASAL CONGESTION
     Dosage: 0.4ML EVERY 4-5 HOURS, ORAL
     Route: 048
     Dates: start: 20040201, end: 20040313

REACTIONS (2)
  - CONVULSION [None]
  - LISTLESS [None]
